FAERS Safety Report 17607304 (Version 1)
Quarter: 2020Q1

REPORT INFORMATION
  Report Type: Spontaneous
  Country: US (occurrence: US)
  Receive Date: 20200331
  Receipt Date: 20200331
  Transmission Date: 20200409
  Serious: Yes (Other)
  Sender: FDA-Public Use
  Company Number: US-PFIZER INC-2020131357

PATIENT
  Age: 63 Year
  Sex: Female

DRUGS (1)
  1. XELJANZ XR [Suspect]
     Active Substance: TOFACITINIB CITRATE
     Indication: PSORIATIC ARTHROPATHY
     Dosage: 11 MG, DAILY
     Route: 048

REACTIONS (8)
  - Psoriasis [Unknown]
  - Bursitis [Unknown]
  - Psoriatic arthropathy [Unknown]
  - Gout [Unknown]
  - Inflammation [Unknown]
  - Dermatitis [Unknown]
  - Back pain [Unknown]
  - Urinary tract infection [Unknown]
